FAERS Safety Report 14163522 (Version 2)
Quarter: 2017Q4

REPORT INFORMATION
  Report Type: Spontaneous
  Country: FR (occurrence: FR)
  Receive Date: 20171106
  Receipt Date: 20171207
  Transmission Date: 20180321
  Serious: Yes (Hospitalization, Other)
  Sender: FDA-Public Use
  Company Number: FR-GILEAD-2017-0303230

PATIENT
  Age: 45 Year
  Sex: Male
  Weight: 61 kg

DRUGS (8)
  1. STRIBILD [Suspect]
     Active Substance: COBICISTAT\ELVITEGRAVIR\EMTRICITABINE\TENOFOVIR DISOPROXIL FUMARATE
     Indication: PRODUCT USED FOR UNKNOWN INDICATION
     Dosage: 150/150/200/245 MG, QD
     Route: 065
  2. KARDEGIC [Concomitant]
     Active Substance: ASPIRIN DL-LYSINE
     Dosage: 75 MG, QD
  3. NITRIDERM [Concomitant]
     Active Substance: NITROGLYCERIN
     Dosage: 10 MG, QD
     Route: 062
  4. METOPROLOL. [Concomitant]
     Active Substance: METOPROLOL
     Dosage: 100 MG, BID
  5. CRESTOR [Concomitant]
     Active Substance: ROSUVASTATIN CALCIUM
     Dosage: 20 MG, QD
  6. PLAVIX [Concomitant]
     Active Substance: CLOPIDOGREL BISULFATE
     Dosage: 75 MG, QD
  7. COVERSYL                           /00790702/ [Concomitant]
     Active Substance: PERINDOPRIL
     Dosage: 5 MG, QD
  8. NICORANDIL [Concomitant]
     Active Substance: NICORANDIL
     Dosage: 10 MG, BID

REACTIONS (1)
  - Pulmonary alveolar haemorrhage [Recovered/Resolved]

NARRATIVE: CASE EVENT DATE: 20171014
